FAERS Safety Report 21188710 (Version 2)
Quarter: 2022Q3

REPORT INFORMATION
  Report Type: Spontaneous
  Country: DE (occurrence: DE)
  Receive Date: 20220809
  Receipt Date: 20220822
  Transmission Date: 20221027
  Serious: Yes (Other)
  Sender: FDA-Public Use
  Company Number: DE-PROCTER+GAMBLE-PH22007833

PATIENT
  Age: 24 Year
  Sex: Female
  Weight: 80 kg

DRUGS (11)
  1. METFORMIN [Suspect]
     Active Substance: METFORMIN HYDROCHLORIDE
     Indication: Product used for unknown indication
     Dosage: 20 TABLET, 1 ONLY
     Route: 048
     Dates: start: 20220722, end: 20220722
  2. SPIRONOLACTONE [Suspect]
     Active Substance: SPIRONOLACTONE
     Indication: Product used for unknown indication
     Dosage: 10 TABLET, 1 ONLY
     Route: 048
     Dates: start: 20220722, end: 20220722
  3. CANDESARTAN [Suspect]
     Active Substance: CANDESARTAN
     Indication: Product used for unknown indication
     Dosage: 16 MILLIGRAM, 1 ONLY , (30 TABLET/S, AT LEAST)
     Route: 048
     Dates: start: 20220722, end: 20220722
  4. TORSEMIDE [Suspect]
     Active Substance: TORSEMIDE
     Indication: Product used for unknown indication
     Dosage: 7 TABLET, 1 ONLY
     Route: 048
     Dates: start: 20220722, end: 20220722
  5. BISOPROLOL [Suspect]
     Active Substance: BISOPROLOL
     Indication: Product used for unknown indication
     Dosage: 05 MILLIGRAM, 1 ONLY (25 TABLET/S)
     Route: 048
     Dates: start: 20220722, end: 20220722
  6. ACETAMINOPHEN\TRAMADOL HYDROCHLORIDE [Suspect]
     Active Substance: ACETAMINOPHEN\TRAMADOL HYDROCHLORIDE
     Indication: Product used for unknown indication
     Dosage: 10 TABLET, 1 ONLY
     Route: 048
  7. CHOLECALCIFEROL [Suspect]
     Active Substance: CHOLECALCIFEROL
     Indication: Product used for unknown indication
     Dosage: VIGANTOL 1000 I.E. VITAMIN D3 TABLETTEN?24 TABLET, 1 ONLY
     Route: 048
     Dates: start: 20220722, end: 20220722
  8. TRAMADOL [Suspect]
     Active Substance: TRAMADOL
     Indication: Product used for unknown indication
     Dosage: UNKNOWN AMOUNT OF TABLET
     Route: 048
     Dates: start: 20220722, end: 20220722
  9. CHOLECALCIFEROL [Suspect]
     Active Substance: CHOLECALCIFEROL
     Indication: Product used for unknown indication
     Dosage: 25 TABLET, 1 ONLY
     Route: 048
     Dates: start: 20220722, end: 20220722
  10. PREDNISOLONE [Suspect]
     Active Substance: PREDNISOLONE
     Indication: Product used for unknown indication
     Dosage: UNKNOWN AMOUNT OF TABLET
     Route: 048
     Dates: start: 20220722, end: 20220722
  11. TORSEMIDE [Suspect]
     Active Substance: TORSEMIDE
     Indication: Product used for unknown indication
     Dosage: UNKNOWN AMOUNT OF TABLET
     Route: 048
     Dates: start: 20220722, end: 20220722

REACTIONS (3)
  - Suicide attempt [Recovering/Resolving]
  - Vomiting [Recovering/Resolving]
  - Intentional overdose [Unknown]

NARRATIVE: CASE EVENT DATE: 20220701
